FAERS Safety Report 5404389-6 (Version None)
Quarter: 2007Q3

REPORT INFORMATION
  Report Type: 
  Country: None (occurrence: None)
  Receive Date: 20070711
  Receipt Date: 20060605
  Transmission Date: 20080115
  Serious: Yes (Other)
  Sender: FDA-Public Use
  Company Number: 239572

PATIENT
  Age: 55 Year
  Sex: Female
  Weight: 72.3 kg

DRUGS (27)
  1. ACTIVELLA [Suspect]
     Indication: MENOPAUSAL SYMPTOMS
     Dosage: 1 TAB, ORAL
     Route: 048
     Dates: start: 20021001, end: 20030601
  2. PREMARIN [Suspect]
     Indication: MENOPAUSAL SYMPTOMS
     Dosage: 0.625 MG
     Dates: start: 19940701, end: 20030601
  3. PROVERA [Suspect]
     Indication: MENOPAUSAL SYMPTOMS
     Dosage: 10 MG, 5 MG
     Dates: start: 19940701, end: 19970101
  4. PROVERA [Suspect]
     Indication: MENOPAUSAL SYMPTOMS
     Dosage: 10 MG, 5 MG
     Dates: start: 19970101, end: 19980701
  5. PREMPRO [Suspect]
     Indication: MENOPAUSAL SYMPTOMS
     Dosage: 0.625 MG/2.5 MG
     Dates: start: 19980701, end: 20020701
  6. PREMARIN [Suspect]
     Indication: MENOPAUSAL SYMPTOMS
     Dosage: TWO TIMES, THREE TIMES, ONE TIME
     Dates: start: 19950101, end: 19950101
  7. PREMARIN [Suspect]
     Indication: MENOPAUSAL SYMPTOMS
     Dosage: TWO TIMES, THREE TIMES, ONE TIME
     Dates: start: 19980101, end: 19980101
  8. PREMARIN [Suspect]
     Indication: MENOPAUSAL SYMPTOMS
     Dosage: TWO TIMES, THREE TIMES, ONE TIME
     Dates: start: 19990101, end: 19990101
  9. PREMARIN [Suspect]
     Indication: MENOPAUSAL SYMPTOMS
     Dosage: TWO TIMES, THREE TIMES, ONE TIME
     Dates: start: 20000101, end: 20000101
  10. IBUPROFEN [Concomitant]
  11. ORUVAIL [Concomitant]
  12. PHENAZOPYRIDINE (PHENAZOPYRIDINE) [Concomitant]
  13. CLEOCIN (CLINDAMYCIN HYDROCHLORIDE) [Concomitant]
  14. DIFLUCAN [Concomitant]
  15. PROPULSID [Concomitant]
  16. AUGMENTIN (CLAVULANATE POTASSIUM, AMOXICILLIN SODIUM) [Concomitant]
  17. ZITHROMAX [Concomitant]
  18. PRILOSEC [Concomitant]
  19. TEQUIN [Concomitant]
  20. METOCLOPRAMIDE [Concomitant]
  21. NEXIUM [Concomitant]
  22. NASACORT AQ (TRIAMCINOLONE ACETONIDE) [Concomitant]
  23. ZOCOR [Concomitant]
  24. CEPHALEXIN [Concomitant]
  25. NOVASAL (PHENYLTOLOXAMINE CITRATE, MAGNESIUM SALICYLATE) [Concomitant]
  26. CIPRO [Concomitant]
  27. PRAVACHOL [Concomitant]

REACTIONS (1)
  - BREAST CANCER [None]
